FAERS Safety Report 16869045 (Version 1)
Quarter: 2019Q3

REPORT INFORMATION
  Report Type: Other
  Country: CA (occurrence: CA)
  Receive Date: 20190930
  Receipt Date: 20190930
  Transmission Date: 20191005
  Serious: Yes (Hospitalization, Other)
  Sender: FDA-Public Use
  Company Number: CA-APOTEX-2019AP022459

PATIENT
  Sex: Female

DRUGS (2)
  1. ZOLPIDEM [Concomitant]
     Active Substance: ZOLPIDEM TARTRATE
     Indication: PRODUCT USED FOR UNKNOWN INDICATION
     Dosage: UNK
     Route: 065
  2. VALPROIC ACID. [Suspect]
     Active Substance: VALPROIC ACID
     Indication: BIPOLAR DISORDER
     Dosage: 250 MG, QD
     Route: 048

REACTIONS (8)
  - Mental impairment [Unknown]
  - Back pain [Unknown]
  - Neck pain [Unknown]
  - Feeling abnormal [Unknown]
  - Vertigo [Unknown]
  - Muscular weakness [Unknown]
  - Depressed mood [Unknown]
  - Feeling drunk [Unknown]
